FAERS Safety Report 9125296 (Version 3)
Quarter: 2013Q2

REPORT INFORMATION
  Report Type: Spontaneous
  Country: JP (occurrence: JP)
  Receive Date: 20130227
  Receipt Date: 20130605
  Transmission Date: 20140414
  Serious: Yes (Hospitalization, Disabling)
  Sender: FDA-Public Use
  Company Number: JP-ASTRAZENECA-2013SE12278

PATIENT
  Age: 75 Year
  Sex: Female
  Weight: 40 kg

DRUGS (12)
  1. FASLODEX [Suspect]
     Indication: BREAST CANCER
     Route: 030
     Dates: start: 20121031
  2. ZOMETA [Concomitant]
     Indication: METASTASES TO BONE
     Route: 041
  3. MUCOSTA [Concomitant]
     Indication: GASTRIC ULCER
     Route: 048
  4. TAKEPRON [Concomitant]
     Indication: GASTRIC ULCER
     Route: 048
  5. OPALMON [Concomitant]
     Indication: SPINAL COLUMN STENOSIS
     Route: 048
  6. BIOFERMIN [Concomitant]
     Indication: PROPHYLAXIS
     Route: 048
  7. PROGESTON [Concomitant]
     Indication: BREAST CANCER
     Route: 048
  8. LASIX [Concomitant]
     Indication: MALIGNANT PLEURAL EFFUSION
     Route: 048
  9. KAYEXALATE [Concomitant]
     Indication: HYPERKALAEMIA
     Route: 048
  10. LYRICA [Concomitant]
     Indication: NEURALGIA
     Route: 048
  11. MAGLAX [Concomitant]
     Indication: CONSTIPATION
     Route: 048
  12. MS-TWICELON [Concomitant]
     Indication: CANCER PAIN
     Route: 048

REACTIONS (3)
  - Peripheral nerve injury [Recovering/Resolving]
  - Gait disturbance [Recovering/Resolving]
  - Wrong technique in drug usage process [Unknown]
